FAERS Safety Report 6511315-5 (Version None)
Quarter: 2009Q4

REPORT INFORMATION
  Report Type: 
  Country: None (occurrence: None)
  Receive Date: 20091222
  Receipt Date: 20090612
  Transmission Date: 20100525
  Serious: No
  Sender: FDA-Public Use
  Company Number: US-ASTRAZENECA-2009UW07864

PATIENT
  Age: 25072 Day
  Sex: Male
  Weight: 99.8 kg

DRUGS (2)
  1. CRESTOR [Suspect]
     Indication: HYPERLIPIDAEMIA
     Route: 048
     Dates: start: 20090316
  2. TOPROL-XL [Concomitant]
     Indication: HYPERTENSION
     Route: 048
     Dates: start: 20051001

REACTIONS (3)
  - DYSGEUSIA [None]
  - PAROSMIA [None]
  - SINUS HEADACHE [None]
